FAERS Safety Report 5638739-2 (Version None)
Quarter: 2008Q1

REPORT INFORMATION
  Report Type: 
  Country: None (occurrence: None)
  Receive Date: 20080222
  Receipt Date: 20080207
  Transmission Date: 20080703
  Serious: Yes (Life-Threatening)
  Sender: FDA-Public Use
  Company Number: 2008JP000112

PATIENT
  Age: 70 Year
  Sex: Male
  Weight: 60 kg

DRUGS (23)
  1. TACROLIMUS CAPSULES(TACROLIMUS CAPSULES) CAPSULES [Suspect]
     Indication: LUPUS NEPHRITIS
     Dosage: 1 MG, D, ORAL, 2MG D, ORAL, 3MG/G, D, ORAL
     Route: 048
     Dates: start: 20071129, end: 20071206
  2. TACROLIMUS CAPSULES(TACROLIMUS CAPSULES) CAPSULES [Suspect]
     Indication: LUPUS NEPHRITIS
     Dosage: 1 MG, D, ORAL, 2MG D, ORAL, 3MG/G, D, ORAL
     Route: 048
     Dates: start: 20071207, end: 20071209
  3. TACROLIMUS CAPSULES(TACROLIMUS CAPSULES) CAPSULES [Suspect]
     Indication: LUPUS NEPHRITIS
     Dosage: 1 MG, D, ORAL, 2MG D, ORAL, 3MG/G, D, ORAL
     Route: 048
     Dates: start: 20071210, end: 20071218
  4. PREDNISOLONE [Suspect]
     Indication: LUPUS NEPHRITIS
     Dosage: 60 MG, D/ORAL
     Route: 048
     Dates: end: 20071204
  5. MEDROL [Suspect]
     Indication: LUPUS NEPHRITIS
     Dosage: 48 MG, D/ORAL, 28 MG, D, ORAL
     Route: 048
     Dates: start: 20071205, end: 20071218
  6. MEDROL [Suspect]
     Indication: LUPUS NEPHRITIS
     Dosage: 48 MG, D/ORAL, 28 MG, D, ORAL
     Route: 048
     Dates: start: 20071219
  7. SOL MEDROL(METHYLPREDNISOLONE, SUCCINATE SODIUM) FORMULATION U NKNOWN [Suspect]
     Dosage: 1 G, D/
     Dates: start: 20071119, end: 20071121
  8. CANDESARTAN CILEXETIL [Concomitant]
  9. TRICHLORMETHIAZIDE [Concomitant]
  10. NORVASC [Concomitant]
  11. LASIX [Concomitant]
  12. BAKTAR (SULFAMETHOXAZOLE, TRIMETHOPRIM) TABLET [Concomitant]
  13. WARFARIN SODIUM [Concomitant]
  14. LIPITOR [Concomitant]
  15. GASTER D [Concomitant]
  16. RABEPRAZOLE SODIUM [Concomitant]
  17. FOSAMAC (ALENDRONATE SODIUM) [Concomitant]
  18. ALFAROL (ALFACALCIDOL) [Concomitant]
  19. ASPARA-CA (ASPARTATE CALCIUM) [Concomitant]
  20. SLOW-K [Concomitant]
  21. SOTALOL HCL [Concomitant]
  22. NOVORAPID (INSULIN ASPART) [Concomitant]
  23. HUMACART (INSULIN HUMAN) [Concomitant]

REACTIONS (4)
  - BRONCHOPULMONARY ASPERGILLOSIS [None]
  - HYPOKALAEMIA [None]
  - NO THERAPEUTIC RESPONSE [None]
  - RENAL DISORDER [None]
